FAERS Safety Report 12437224 (Version 1)
Quarter: 2016Q2

REPORT INFORMATION
  Report Type: Spontaneous
  Country: CA (occurrence: None)
  Receive Date: 20160603
  Receipt Date: 20160603
  Transmission Date: 20160815
  Serious: Yes (Life-Threatening, Hospitalization, Disabling)
  Sender: FDA-Public Use
  Company Number: None

PATIENT
  Age: 25 Year
  Sex: Male
  Weight: 78.02 kg

DRUGS (1)
  1. EFFEXOR XR [Suspect]
     Active Substance: VENLAFAXINE HYDROCHLORIDE
     Indication: DEPRESSION
     Route: 048
     Dates: start: 20140801, end: 20150520

REACTIONS (11)
  - Erectile dysfunction [None]
  - Testicular pain [None]
  - Nerve injury [None]
  - Suicidal ideation [None]
  - Hypoaesthesia [None]
  - Sensory loss [None]
  - Pain [None]
  - Pain in extremity [None]
  - Penile pain [None]
  - Fatigue [None]
  - Back pain [None]

NARRATIVE: CASE EVENT DATE: 20150101
